FAERS Safety Report 5013467-5 (Version None)
Quarter: 2006Q2

REPORT INFORMATION
  Report Type: 
  Country: None (occurrence: None)
  Receive Date: 20060525
  Receipt Date: 20060512
  Transmission Date: 20061013
  Serious: Yes (Other)
  Sender: FDA-Public Use
  Company Number: 2006065305

PATIENT
  Age: 65 Year
  Sex: Male

DRUGS (3)
  1. BEXTRA [Suspect]
     Indication: ARTHRALGIA
     Dosage: 20 MG (10 MG, 2 IN 1 D),
  2. BEXTRA [Suspect]
     Indication: INTERVERTEBRAL DISC DEGENERATION
     Dosage: 20 MG (10 MG, 2 IN 1 D),
  3. VIAGRA [Suspect]
     Indication: ERECTILE DYSFUNCTION

REACTIONS (3)
  - HEART RATE INCREASED [None]
  - RASH PAPULAR [None]
  - RASH PRURITIC [None]
